FAERS Safety Report 5942798 (Version 4)
Quarter: 2018Q1

REPORT INFORMATION
  Report Type: Spontaneous
  Country: FR (occurrence: FR)
  Receive Date: 20051216
  Receipt Date: 20180301
  Transmission Date: 20180509
  Serious: Yes (Hospitalization)
  Sender: FDA-Public Use
  Company Number: FR-JNJFOC-20051201755

PATIENT
  Age: 50 Year
  Sex: Male
  Weight: 69 kg

DRUGS (8)
  1. KETODERM [Suspect]
     Active Substance: KETOCONAZOLE
     Indication: FUNGAL INFECTION
     Route: 061
     Dates: start: 20051030, end: 20051103
  2. LEXOMIL [Concomitant]
     Active Substance: BROMAZEPAM
     Route: 065
  3. FUCIDINE [Suspect]
     Active Substance: FUSIDIC ACID
     Indication: FUNGAL INFECTION
     Route: 061
     Dates: start: 20051030, end: 20051103
  4. NERISONE [Suspect]
     Active Substance: DIFLUCORTOLONE VALERATE
     Indication: FUNGAL INFECTION
     Route: 061
     Dates: start: 20051102, end: 20051103
  5. POLARAMINE [Suspect]
     Active Substance: DEXCHLORPHENIRAMINE MALEATE
     Indication: PRODUCT USED FOR UNKNOWN INDICATION
     Route: 061
     Dates: start: 20051030, end: 20051103
  6. EQUANIL [Concomitant]
     Active Substance: MEPROBAMATE
     Route: 065
  7. GLYCEROL\PARAFFIN [Suspect]
     Active Substance: GLYCERIN\PARAFFIN
     Indication: FUNGAL INFECTION
     Route: 061
     Dates: start: 20051030, end: 20051103
  8. PEVARYL [Suspect]
     Active Substance: ECONAZOLE NITRATE
     Indication: FUNGAL INFECTION
     Route: 062
     Dates: start: 20051030, end: 20051103

REACTIONS (1)
  - Acute generalised exanthematous pustulosis [Recovered/Resolved]

NARRATIVE: CASE EVENT DATE: 20051103
